FAERS Safety Report 4989944-X (Version None)
Quarter: 2006Q2

REPORT INFORMATION
  Report Type: 
  Country: None (occurrence: None)
  Receive Date: 20060428
  Receipt Date: 20060420
  Transmission Date: 20061013
  Serious: Yes (Life-Threatening)
  Sender: FDA-Public Use
  Company Number: GXKR2006PL02265

PATIENT
  Age: 2 Year
  Sex: Female
  Weight: 12 kg

DRUGS (5)
  1. AMOKSIKLAV (NGX) (AMOXICILLIN, CLAVULANATE) SUSPENSION [Suspect]
     Indication: RHINITIS
     Dosage: 3 ML, BID, ORAL
     Route: 048
     Dates: start: 20060410, end: 20060412
  2. PROBIOLAC (LACTOBACILLUS ACIDOPHILUS) [Concomitant]
  3. PYROSAL [Concomitant]
  4. CLEMASTINE [Concomitant]
  5. ACETAMINOPHEN [Concomitant]

REACTIONS (1)
  - FEBRILE CONVULSION [None]
